FAERS Safety Report 6838780-8 (Version None)
Quarter: 2010Q3

REPORT INFORMATION
  Report Type: 
  Country: None (occurrence: None)
  Receive Date: 20100713
  Receipt Date: 20070625
  Transmission Date: 20110219
  Serious: No
  Sender: FDA-Public Use
  Company Number: US-PFIZER INC-2007039880

PATIENT
  Sex: Female
  Weight: 90.72 kg

DRUGS (15)
  1. CHANTIX [Suspect]
     Indication: SMOKING CESSATION THERAPY
     Dates: start: 20070414
  2. TRAZODONE [Interacting]
  3. ALPRAZOLAM [Interacting]
     Indication: ANXIETY
     Dosage: BID: PRN
  4. EFFEXOR XR [Interacting]
     Indication: ANXIETY
  5. TOPROL-XL [Concomitant]
  6. IMDUR [Concomitant]
  7. PLAVIX [Concomitant]
  8. LIPITOR [Concomitant]
  9. NORVASC [Concomitant]
  10. NIASPAN [Concomitant]
  11. MOBIC [Concomitant]
  12. LAMICTAL [Concomitant]
  13. MS CONTIN [Concomitant]
  14. PRILOSEC [Concomitant]
  15. VITAMINS [Concomitant]

REACTIONS (4)
  - DRUG INTERACTION [None]
  - FATIGUE [None]
  - INTESTINAL FUNCTIONAL DISORDER [None]
  - MOOD ALTERED [None]
